FAERS Safety Report 4769898-1 (Version None)
Quarter: 2005Q3

REPORT INFORMATION
  Report Type: 
  Country: None (occurrence: None)
  Receive Date: 20050912
  Receipt Date: 20050513
  Transmission Date: 20060218
  Serious: Yes (Life-Threatening, Hospitalization)
  Sender: FDA-Public Use
  Company Number: US015263

PATIENT
  Age: 15 Year
  Sex: Female
  Weight: 55.7924 kg

DRUGS (2)
  1. GABITRIL [Suspect]
     Dosage: 56 MG ONCE ORAL
     Route: 048
     Dates: start: 20050414, end: 20050414
  2. LAMICTAL [Suspect]
     Dosage: 1.5 TAB/CAP QD ORAL
     Route: 048
     Dates: start: 20041201

REACTIONS (14)
  - AGGRESSION [None]
  - BELLIGERENCE [None]
  - BULIMIA NERVOSA [None]
  - COMA [None]
  - DECREASED APPETITE [None]
  - DEPRESSION [None]
  - GAIT DISTURBANCE [None]
  - INTENTIONAL MISUSE [None]
  - NIGHTMARE [None]
  - REGRESSIVE BEHAVIOUR [None]
  - SELF-INJURIOUS IDEATION [None]
  - STUPOR [None]
  - SUICIDE ATTEMPT [None]
  - SYNCOPE [None]
